FAERS Safety Report 5408584-1 (Version None)
Quarter: 2007Q3

REPORT INFORMATION
  Report Type: 
  Country: None (occurrence: None)
  Receive Date: 20070808
  Receipt Date: 20070726
  Transmission Date: 20080115
  Serious: Yes (Other)
  Sender: FDA-Public Use
  Company Number: BR-PFIZER INC-2007064533

PATIENT
  Sex: Female

DRUGS (1)
  1. VIRACEPT [Suspect]
     Indication: HIV INFECTION
     Route: 048

REACTIONS (2)
  - ABORTION SPONTANEOUS [None]
  - AMNIORRHOEA [None]
